FAERS Safety Report 24117158 (Version 1)
Quarter: 2024Q3

REPORT INFORMATION
  Report Type: Report from Study
  Country: US (occurrence: None)
  Receive Date: 20240722
  Receipt Date: 20240722
  Transmission Date: 20241017
  Serious: Yes (Hospitalization)
  Sender: ASTRAZENECA
  Company Number: 2021A373468

PATIENT
  Sex: Female
  Weight: 58.5 kg

DRUGS (3)
  1. CALQUENCE [Suspect]
     Active Substance: ACALABRUTINIB
     Indication: Mantle cell lymphoma
     Route: 048
     Dates: start: 20210329
  2. PEPCID AC [Concomitant]
     Active Substance: FAMOTIDINE
  3. MULTIVITAMIN ADULT [Concomitant]

REACTIONS (1)
  - Haematochezia [Unknown]
